FAERS Safety Report 7578661-8 (Version None)
Quarter: 2011Q2

REPORT INFORMATION
  Report Type: 
  Country: None (occurrence: None)
  Receive Date: 20110628
  Receipt Date: 20110623
  Transmission Date: 20111010
  Serious: Yes (Death, Hospitalization, Disabling, Other)
  Sender: FDA-Public Use
  Company Number: PHEH2007US03273

PATIENT
  Sex: Male
  Weight: 116.55 kg

DRUGS (65)
  1. BENICAR [Concomitant]
  2. VICOPROFEN [Concomitant]
  3. DULCOLAX [Concomitant]
  4. PERIOGARD [Concomitant]
  5. DEXAMETHASONE [Concomitant]
  6. BACTERIOSTATIC SODIUM CHLORIDE INJECTION [Concomitant]
  7. CIPRO [Concomitant]
  8. PHENERGAN HCL [Concomitant]
     Dosage: 25MG/ML
  9. PREVACID [Concomitant]
  10. HALDOL [Concomitant]
     Dosage: UNK
     Dates: start: 20080101
  11. OXYGEN [Concomitant]
  12. POTASSIUM CHLORIDE [Concomitant]
  13. HYDROCHLOROTHIAZIDE [Concomitant]
     Dosage: 30 MG, DAILY
  14. TOPROL-XL [Concomitant]
  15. ALBUTEROL SULFATE AUTOHALER [Concomitant]
  16. ENULOSE [Concomitant]
  17. ALDACTONE [Concomitant]
  18. PERCOCET [Concomitant]
  19. ZYMAR [Concomitant]
  20. CLEOMYCIN [Concomitant]
  21. CLINDAMYCIN [Concomitant]
  22. PERIDEX [Concomitant]
  23. BIAXIN [Concomitant]
  24. ZAROXOLYN [Concomitant]
  25. ULTRAM [Concomitant]
  26. PROTONIX [Concomitant]
     Dosage: 40MG,
     Route: 048
  27. VALIUM [Concomitant]
     Dosage: 5MG,
     Route: 048
  28. ACIPHEX [Concomitant]
     Dosage: 20MG,
  29. REGLAN [Concomitant]
  30. ADRENALIN IN OIL INJ [Concomitant]
  31. ZOMETA [Suspect]
     Indication: METASTASES TO BONE
     Dosage: 4 MG, QMO
     Route: 042
     Dates: start: 20030901, end: 20041201
  32. LACTULOSE [Concomitant]
  33. LUPRON [Concomitant]
     Dosage: UNK
     Dates: start: 20030218
  34. REMERON [Concomitant]
  35. MS CONTIN [Concomitant]
  36. LIDODERM [Concomitant]
     Dosage: UNK
     Dates: start: 20080101
  37. DECADRON                                /NET/ [Concomitant]
  38. ROBITUSSIN ^ROBINS^ [Concomitant]
  39. KLOR-CON [Concomitant]
  40. AMITRIPTYLINE HCL [Concomitant]
  41. COMPAZINE [Concomitant]
  42. NSAID'S [Concomitant]
  43. DECADRON [Concomitant]
     Dosage: 10MG,
     Route: 042
  44. ZOMETA [Suspect]
     Indication: PROSTATE CANCER
  45. EFFEXOR [Concomitant]
  46. PHENOBARBITAL TAB [Concomitant]
     Dosage: UNK
     Dates: start: 20080101
  47. GABAPENTIN [Concomitant]
  48. RESTORIL [Concomitant]
  49. ROBINUL [Concomitant]
  50. MYLANTA                                 /USA/ [Concomitant]
  51. NYSTATIN [Concomitant]
  52. AMANTADINE HCL [Concomitant]
  53. ZOFRAN [Concomitant]
     Dosage: 8
     Route: 042
  54. SOLU-MEDROL [Concomitant]
     Dosage: 40MG/ML
  55. MIDAZOLAM HCL [Concomitant]
     Dosage: 1 MG, PRN
     Route: 042
  56. CASODEX [Concomitant]
     Dosage: DAILY
     Dates: start: 20030218
  57. LIDOCAINE [Concomitant]
     Dosage: UNK
     Dates: start: 20080101
  58. FUROSEMIDE [Concomitant]
  59. ELAVIL [Concomitant]
  60. ELIGARD [Concomitant]
     Dosage: 30 MG, UNK
  61. XYLOCAINE [Concomitant]
  62. SENOKOT                                 /USA/ [Concomitant]
  63. RITALIN [Concomitant]
  64. ANTIVERT ^PFIZER^ [Concomitant]
  65. NEURONTIN [Concomitant]
     Dosage: 300MG,TITRATE AS TOLERATED TO ONE THREE TIMES DAY
     Route: 048

REACTIONS (99)
  - WEIGHT DECREASED [None]
  - TOOTHACHE [None]
  - NECK PAIN [None]
  - DEAFNESS [None]
  - HEADACHE [None]
  - BLOOD UREA INCREASED [None]
  - INTERVERTEBRAL DISC PROTRUSION [None]
  - RENAL CYST [None]
  - ACQUIRED OESOPHAGEAL WEB [None]
  - GENERALISED OEDEMA [None]
  - TONGUE INJURY [None]
  - ANXIETY [None]
  - CATARACT [None]
  - HEARING IMPAIRED [None]
  - LACUNAR INFARCTION [None]
  - VERTIGO [None]
  - BALANCE DISORDER [None]
  - HEPATIC CYST [None]
  - EXOSTOSIS [None]
  - METASTASES TO SPINE [None]
  - GASTRITIS [None]
  - PROSTATIC SPECIFIC ANTIGEN INCREASED [None]
  - TOOTH LOSS [None]
  - BONE LESION [None]
  - RESPIRATORY DISTRESS [None]
  - AGITATION [None]
  - BONE DISORDER [None]
  - PRIMARY SEQUESTRUM [None]
  - GINGIVITIS [None]
  - ASTHENIA [None]
  - OSTEOARTHRITIS [None]
  - SQUAMOUS CELL CARCINOMA [None]
  - SYNCOPE [None]
  - CONSTIPATION [None]
  - INCONTINENCE [None]
  - INSOMNIA [None]
  - KLEBSIELLA TEST POSITIVE [None]
  - CAROTID ARTERIOSCLEROSIS [None]
  - DRUG HYPERSENSITIVITY [None]
  - NEURALGIA [None]
  - ASTIGMATISM [None]
  - DEPRESSION [None]
  - RESTLESSNESS [None]
  - OSTEONECROSIS OF JAW [None]
  - TONGUE ULCERATION [None]
  - PERIODONTAL DISEASE [None]
  - DECREASED INTEREST [None]
  - VOMITING [None]
  - FATIGUE [None]
  - BACK PAIN [None]
  - METASTASES TO BONE [None]
  - GAIT DISTURBANCE [None]
  - BLOOD ALBUMIN DECREASED [None]
  - LETHARGY [None]
  - PAIN IN JAW [None]
  - HIATUS HERNIA [None]
  - SKIN CANCER [None]
  - BLOOD PRESSURE FLUCTUATION [None]
  - OEDEMA PERIPHERAL [None]
  - URINARY TRACT INFECTION [None]
  - ALANINE AMINOTRANSFERASE DECREASED [None]
  - ATRIOVENTRICULAR BLOCK FIRST DEGREE [None]
  - LACERATION [None]
  - GLOSSODYNIA [None]
  - IMPAIRED HEALING [None]
  - LUNG CARCINOMA CELL TYPE UNSPECIFIED STAGE 0 [None]
  - FALL [None]
  - CONFUSIONAL STATE [None]
  - TRIGGER FINGER [None]
  - METASTASES TO LUNG [None]
  - PULMONARY CONGESTION [None]
  - ORAL MUCOSAL ERYTHEMA [None]
  - GENERAL PHYSICAL HEALTH DETERIORATION [None]
  - PAIN [None]
  - HYPOAESTHESIA [None]
  - BASAL CELL CARCINOMA [None]
  - NAUSEA [None]
  - RECTAL HAEMORRHAGE [None]
  - ARTHRALGIA [None]
  - OESOPHAGITIS [None]
  - NEUROPATHY PERIPHERAL [None]
  - MUSCULAR WEAKNESS [None]
  - HAEMOGLOBIN DECREASED [None]
  - DYSPHAGIA [None]
  - BONE PAIN [None]
  - SPONDYLOLISTHESIS [None]
  - DEHYDRATION [None]
  - PROSTATE CANCER [None]
  - OSTEITIS [None]
  - LUMBAR SPINAL STENOSIS [None]
  - HYPERTENSION [None]
  - ARTHRITIS [None]
  - DYSPNOEA [None]
  - HYPOTENSION [None]
  - DEPRESSED MOOD [None]
  - BLOOD GLUCOSE DECREASED [None]
  - BREAST TENDERNESS [None]
  - DIZZINESS [None]
  - MENIERE'S DISEASE [None]
